FAERS Safety Report 6420264-2 (Version None)
Quarter: 2009Q4

REPORT INFORMATION
  Report Type: 
  Country: None (occurrence: None)
  Receive Date: 20091029
  Receipt Date: 20091016
  Transmission Date: 20100525
  Serious: Yes (Hospitalization, Other)
  Sender: FDA-Public Use
  Company Number: US-ROCHE-644041

PATIENT
  Sex: Female
  Weight: 56.7 kg

DRUGS (6)
  1. ACCUTANE [Suspect]
     Route: 065
     Dates: start: 20010803
  2. ACCUTANE [Suspect]
     Dosage: DOSAGE INCREASED
     Route: 065
     Dates: start: 20011220, end: 20020212
  3. ZYBAN [Concomitant]
  4. ORTHO TRI-CYCLEN [Concomitant]
  5. RETIN-A MICRO [Concomitant]
     Indication: ACNE
     Dosage: DRUG NAME: RETIN-A MICRO GEL
  6. YASMIN [Concomitant]

REACTIONS (17)
  - ABDOMINAL DISTENSION [None]
  - ACNE [None]
  - ANXIETY [None]
  - ASTHENIA [None]
  - COLITIS ULCERATIVE [None]
  - CROHN'S DISEASE [None]
  - DEPRESSION [None]
  - DIZZINESS [None]
  - FATIGUE [None]
  - GASTROOESOPHAGEAL REFLUX DISEASE [None]
  - ILEAL STENOSIS [None]
  - INFLAMMATORY BOWEL DISEASE [None]
  - SACROILIITIS [None]
  - SMALL INTESTINAL OBSTRUCTION [None]
  - SYNCOPE [None]
  - TREMOR [None]
  - UTERINE HAEMORRHAGE [None]
